FAERS Safety Report 22524356 (Version 1)
Quarter: 2023Q2

REPORT INFORMATION
  Report Type: Spontaneous
  Country: JP (occurrence: JP)
  Receive Date: 20230606
  Receipt Date: 20230606
  Transmission Date: 20230722
  Serious: Yes (Hospitalization)
  Sender: FDA-Public Use
  Company Number: JP-TEVA-2023-JP-2894209

PATIENT
  Age: 36 Year
  Sex: Male

DRUGS (6)
  1. ARIPIPRAZOLE [Suspect]
     Active Substance: ARIPIPRAZOLE
     Indication: Product used for unknown indication
     Dosage: 12 MILLIGRAM DAILY;
     Route: 065
  2. ARIPIPRAZOLE [Suspect]
     Active Substance: ARIPIPRAZOLE
     Dosage: 18 MILLIGRAM DAILY;
     Route: 065
  3. LEVODOPA [Suspect]
     Active Substance: LEVODOPA
     Indication: Parkinson^s disease
     Route: 065
  4. LEVODOPA [Suspect]
     Active Substance: LEVODOPA
     Dosage: INCREASED DOSE
     Route: 065
  5. OLANZAPINE [Concomitant]
     Active Substance: OLANZAPINE
     Indication: Persecutory delusion
     Dosage: 5 MILLIGRAM DAILY;
     Route: 065
  6. OLANZAPINE [Concomitant]
     Active Substance: OLANZAPINE
     Indication: Hallucination, auditory
     Dosage: 2.5 MILLIGRAM DAILY;
     Route: 065

REACTIONS (7)
  - Delusion [Recovering/Resolving]
  - Hallucination [Recovering/Resolving]
  - Motor dysfunction [Unknown]
  - Posture abnormal [Recovering/Resolving]
  - Musculoskeletal stiffness [Recovering/Resolving]
  - Postural reflex impairment [Recovering/Resolving]
  - Gait disturbance [Recovering/Resolving]
